FAERS Safety Report 5137393-6 (Version None)
Quarter: 2006Q4

REPORT INFORMATION
  Report Type: 
  Country: None (occurrence: None)
  Receive Date: 20061030
  Receipt Date: 20051025
  Transmission Date: 20070319
  Serious: No
  Sender: FDA-Public Use
  Company Number: US-GLAXOSMITHKLINE-A0579576A

PATIENT
  Age: 78 Year
  Sex: Female

DRUGS (8)
  1. ADVAIR HFA [Suspect]
     Indication: ASTHMA
     Dosage: 1PUFF TWICE PER DAY
     Route: 055
     Dates: start: 20041101
  2. PROVENTIL [Concomitant]
  3. ALOPURINOL [Concomitant]
  4. ACTOS [Concomitant]
  5. LEVOXYL [Concomitant]
  6. PRANDIN [Concomitant]
  7. VITAMINS [Concomitant]
  8. VERAPAMIL [Concomitant]

REACTIONS (3)
  - DYSPHONIA [None]
  - PHARYNGOLARYNGEAL PAIN [None]
  - WHEEZING [None]
